FAERS Safety Report 6015943-5 (Version None)
Quarter: 2008Q4

REPORT INFORMATION
  Report Type: 
  Country: None (occurrence: None)
  Receive Date: 20081216
  Receipt Date: 20080414
  Transmission Date: 20090506
  Serious: Yes (Other)
  Sender: FDA-Public Use
  Company Number: US-WYE-H03612208

PATIENT
  Age: 36 Year
  Sex: Female

DRUGS (4)
  1. EFFEXOR XR [Suspect]
     Indication: DEPRESSION
     Dosage: TITRATED UP, ORAL ; 225 MG 1X PER 1 DAY, ORAL
     Route: 048
     Dates: start: 20071001
  2. XANAX [Suspect]
  3. TRAMADOL HCL [Suspect]
  4. ALCOHOL [Suspect]
     Dosage: COMBINES MEDIATIONS WITH ALCOHOL

REACTIONS (15)
  - AGGRESSION [None]
  - ANXIETY [None]
  - CONDITION AGGRAVATED [None]
  - DEPRESSION [None]
  - HALLUCINATION [None]
  - IMPULSIVE BEHAVIOUR [None]
  - INSOMNIA [None]
  - IRRITABILITY [None]
  - LOGORRHOEA [None]
  - MOOD ALTERED [None]
  - PANIC ATTACK [None]
  - PERSONALITY CHANGE [None]
  - PSYCHOMOTOR HYPERACTIVITY [None]
  - RESTLESSNESS [None]
  - SUICIDE ATTEMPT [None]
